FAERS Safety Report 4956292-3 (Version None)
Quarter: 2006Q1

REPORT INFORMATION
  Report Type: 
  Country: None (occurrence: None)
  Receive Date: 20060329
  Receipt Date: 20051020
  Transmission Date: 20060701
  Serious: Yes (Hospitalization)
  Sender: FDA-Public Use
  Company Number: 2005UW15968

PATIENT
  Age: 68 Year
  Sex: Female
  Weight: 51.4 kg

DRUGS (6)
  1. SEROQUEL [Suspect]
     Indication: PSYCHOTIC DISORDER
     Route: 048
     Dates: end: 20050901
  2. SEROQUEL [Suspect]
     Route: 048
  3. PLAVIX [Concomitant]
     Route: 048
     Dates: end: 20051005
  4. LOPRESSOR [Concomitant]
     Indication: HYPERTENSION
     Route: 048
  5. WELLBUTRIN [Concomitant]
     Route: 048
  6. NETZEL [Concomitant]
     Route: 048

REACTIONS (8)
  - BLOOD CREATINE PHOSPHOKINASE INCREASED [None]
  - CEREBELLAR HAEMORRHAGE [None]
  - HAEMORRHAGIC CEREBRAL INFARCTION [None]
  - MUSCLE RIGIDITY [None]
  - NEUROLEPTIC MALIGNANT SYNDROME [None]
  - PORPHYRIA [None]
  - POSTURE ABNORMAL [None]
  - PYREXIA [None]
